FAERS Safety Report 9998807 (Version 1)
Quarter: 2014Q1

REPORT INFORMATION
  Report Type: Spontaneous
  Country: US (occurrence: US)
  Receive Date: 20140312
  Receipt Date: 20140312
  Transmission Date: 20141002
  Serious: No
  Sender: FDA-Public Use
  Company Number: US-BIOGENIDEC-2014BI020088

PATIENT
  Age: 46 Year
  Sex: 0

DRUGS (19)
  1. TECFIDERA [Suspect]
     Indication: MULTIPLE SCLEROSIS
     Route: 048
     Dates: start: 20130613
  2. FUROSEMIDE [Concomitant]
     Dates: start: 20121229
  3. LYRICA [Concomitant]
     Dates: start: 20121229
  4. LYRICA [Concomitant]
     Dates: start: 20100514
  5. FOLIC ACID [Concomitant]
     Dates: start: 20121229
  6. ALPRAZOLAM [Concomitant]
     Dates: start: 20121229
  7. SPIRINOLACTONE [Concomitant]
     Dates: start: 20121229
  8. METFORMIN [Concomitant]
     Dates: start: 20121229
  9. ASPIRIN [Concomitant]
     Dates: start: 20121229
  10. REBIF [Concomitant]
     Dates: start: 20121229
  11. AMANTADINE [Concomitant]
     Dates: start: 20121229
  12. IMIPRAMINE [Concomitant]
     Dates: start: 20121229
  13. LOSARTAN [Concomitant]
     Dates: start: 20121229
  14. GABAPENTIN [Concomitant]
     Dates: start: 20121229
  15. GABAPENTIN [Concomitant]
     Dates: start: 20100514
  16. CITALOPRAM [Concomitant]
     Dates: start: 20121229
  17. PERCOCET [Concomitant]
     Dates: start: 20121229
  18. BACLOFEN [Concomitant]
     Dates: start: 20100514
  19. HYDROCODONE/ APAP [Concomitant]
     Dates: start: 20100514

REACTIONS (1)
  - Urinary tract infection [Unknown]
